FAERS Safety Report 18559510 (Version 1)
Quarter: 2020Q4

REPORT INFORMATION
  Report Type: Spontaneous
  Country: US (occurrence: US)
  Receive Date: 20201127
  Receipt Date: 20201127
  Transmission Date: 20210114
  Serious: No
  Sender: FDA-Public Use
  Company Number: None

PATIENT
  Age: 76 Year
  Sex: Female

DRUGS (1)
  1. CLINDAMYCIN 300MG CAPSULE [Suspect]
     Active Substance: CLINDAMYCIN
     Indication: DEVICE RELATED INFECTION
     Dosage: ?          QUANTITY:2 PILLS;?
     Route: 048
     Dates: start: 20201013, end: 20201013

REACTIONS (3)
  - Diarrhoea [None]
  - Retching [None]
  - Aphonia [None]

NARRATIVE: CASE EVENT DATE: 20201013
